FAERS Safety Report 7071485-X (Version None)
Quarter: 2010Q4

REPORT INFORMATION
  Report Type: 
  Country: None (occurrence: None)
  Receive Date: 20101029
  Receipt Date: 20090910
  Transmission Date: 20110411
  Serious: No
  Sender: FDA-Public Use
  Company Number: A0806752A

PATIENT
  Age: 75 Year
  Sex: Female

DRUGS (11)
  1. ADVAIR DISKUS 100/50 [Suspect]
     Indication: ASTHMA
     Dosage: 1PUFF PER DAY
     Route: 055
     Dates: start: 20090301, end: 20090710
  2. ATENOLOL [Concomitant]
  3. MICARDIS [Concomitant]
  4. ASPIRIN [Concomitant]
  5. PATANOL [Concomitant]
  6. LASIX [Concomitant]
  7. POTASSIUM CHLORIDE [Concomitant]
  8. LOVASTATIN [Concomitant]
  9. EFFEXOR [Concomitant]
  10. ACETAMINOPHEN [Concomitant]
  11. GLUCOSAMINE CHONDROITIN [Concomitant]

REACTIONS (5)
  - CANDIDIASIS [None]
  - DYSPHONIA [None]
  - GINGIVAL DISCOLOURATION [None]
  - MOUTH HAEMORRHAGE [None]
  - STOMATITIS [None]
